FAERS Safety Report 8415870-X (Version None)
Quarter: 2012Q2

REPORT INFORMATION
  Report Type: 
  Country: None (occurrence: None)
  Receive Date: 20120606
  Receipt Date: 20120528
  Transmission Date: 20120825
  Serious: Yes (Other)
  Sender: FDA-Public Use
  Company Number: DE-UCBSA-058324

PATIENT
  Sex: Male

DRUGS (10)
  1. HUMIRA [Concomitant]
  2. FOLIC ACID [Concomitant]
  3. CORTISONE ACETATE [Concomitant]
     Dates: start: 20120101
  4. CIMZIA [Suspect]
     Indication: POLYARTHRITIS
  5. METHOTREXATE [Suspect]
     Dosage: 25 MG INJECTION IN LAST THREE MONTHS
  6. FLUPIRTINE MALEATE [Concomitant]
     Dosage: UNKNOWN DOSE
  7. ANTI-NAUSEA DRUG [Concomitant]
  8. PAIN KILLER [Concomitant]
  9. ACORXIA [Concomitant]
     Dates: start: 20120101
  10. METHOTREXATE [Suspect]
     Dosage: 25 MG TABLETS
     Dates: start: 20091101

REACTIONS (3)
  - BLOOD CREATININE INCREASED [None]
  - HEPATIC STEATOSIS [None]
  - BLOOD PRESSURE INCREASED [None]
